FAERS Safety Report 7238111-8 (Version None)
Quarter: 2011Q1

REPORT INFORMATION
  Report Type: 
  Country: None (occurrence: None)
  Receive Date: 20110121
  Receipt Date: 20110110
  Transmission Date: 20110831
  Serious: Yes (Hospitalization, Other)
  Sender: FDA-Public Use
  Company Number: GB-ELI_LILLY_AND_COMPANY-GB201004005460

PATIENT
  Sex: Male
  Weight: 83.447 kg

DRUGS (3)
  1. DISULFIRAM [Concomitant]
     Indication: ALCOHOLISM
     Dosage: 200 MG, UNK
     Route: 048
     Dates: start: 20090801
  2. SUBOXONE [Concomitant]
     Dosage: 12 MG, UNK
     Route: 048
     Dates: start: 20090801
  3. ZYPREXA [Suspect]
     Indication: PSYCHOTIC DISORDER
     Dosage: 20 MG, UNK
     Route: 048
     Dates: start: 20060101, end: 20100608

REACTIONS (2)
  - DEEP VEIN THROMBOSIS [None]
  - PULMONARY EMBOLISM [None]
